FAERS Safety Report 5674863-6 (Version None)
Quarter: 2008Q1

REPORT INFORMATION
  Report Type: 
  Country: None (occurrence: None)
  Receive Date: 20080319
  Receipt Date: 20080319
  Transmission Date: 20080703
  Serious: Yes (Other)
  Sender: FDA-Public Use
  Company Number: None

PATIENT
  Sex: Female
  Weight: 97.5234 kg

DRUGS (14)
  1. SERTRALINE [Suspect]
     Indication: DYSTHYMIC DISORDER
     Dosage: 1 TABLET DAILY PO
     Route: 048
     Dates: start: 20061101, end: 20070501
  2. CELEBREX [Concomitant]
  3. GABAPENTIN [Concomitant]
  4. HYZAAR [Concomitant]
  5. LIPITOR [Concomitant]
  6. LUNESTA [Concomitant]
  7. OMEPRAZOLE [Concomitant]
  8. SINGULAIR [Concomitant]
  9. TRADER JOES SENIOR [Concomitant]
  10. ASCORBIC ACID [Concomitant]
  11. VITAMIN E [Concomitant]
  12. CALCIUM [Concomitant]
  13. VITAMIN D-3 [Concomitant]
  14. FISH OIL [Concomitant]

REACTIONS (2)
  - DEPRESSION [None]
  - THERAPEUTIC RESPONSE UNEXPECTED WITH DRUG SUBSTITUTION [None]
